FAERS Safety Report 5247465-3 (Version None)
Quarter: 2007Q1

REPORT INFORMATION
  Report Type: 
  Country: None (occurrence: None)
  Receive Date: 20070227
  Receipt Date: 20070219
  Transmission Date: 20070707
  Serious: No
  Sender: FDA-Public Use
  Company Number: US-BAYER-200615710BWH

PATIENT
  Age: 52 Year
  Sex: Male
  Weight: 64 kg

DRUGS (6)
  1. NEXAVAR [Suspect]
     Indication: METASTATIC RENAL CELL CARCINOMA
     Dosage: TOTAL DAILY DOSE: 800 MG  UNIT DOSE: 200 MG
     Route: 048
     Dates: start: 20060901, end: 20061101
  2. NEXAVAR [Suspect]
     Dosage: TOTAL DAILY DOSE: 400 MG  UNIT DOSE: 200 MG
     Route: 048
     Dates: start: 20061101
  3. DILANTIN [Concomitant]
  4. PAXIL [Concomitant]
  5. FENTANYL TRANSDERMAL SYSTEM [Concomitant]
     Indication: BACK INJURY
  6. SPIRIVA [Concomitant]
     Indication: CHRONIC OBSTRUCTIVE PULMONARY DISEASE

REACTIONS (8)
  - ERYTHEMA [None]
  - FATIGUE [None]
  - HAIR GROWTH ABNORMAL [None]
  - HYPERKERATOSIS [None]
  - HYPOTENSION [None]
  - RASH [None]
  - TEMPERATURE REGULATION DISORDER [None]
  - WEIGHT DECREASED [None]
